FAERS Safety Report 6687332-1 (Version None)
Quarter: 2010Q2

REPORT INFORMATION
  Report Type: 
  Country: None (occurrence: None)
  Receive Date: 20100419
  Receipt Date: 20100409
  Transmission Date: 20101027
  Serious: Yes (Other)
  Sender: FDA-Public Use
  Company Number: GR-ABBOTT-10P-066-0637510-00

PATIENT
  Age: 50 Year
  Sex: Female

DRUGS (4)
  1. DEPAKINE CHRONO [Suspect]
     Indication: DRUG USE FOR UNKNOWN INDICATION
  2. DEPAKINE CHRONO [Interacting]
  3. DEPAKINE CHRONO [Interacting]
  4. AMINO ACIDS [Interacting]
     Indication: ALOPECIA
     Route: 065

REACTIONS (3)
  - ALOPECIA [None]
  - DRUG INTERACTION [None]
  - DRUG LEVEL INCREASED [None]
